FAERS Safety Report 5547683-0 (Version None)
Quarter: 2007Q4

REPORT INFORMATION
  Report Type: 
  Country: None (occurrence: None)
  Receive Date: 20071211
  Receipt Date: 20070228
  Transmission Date: 20080405
  Serious: No
  Sender: FDA-Public Use
  Company Number: US-AMGEN-KDL211289

PATIENT
  Sex: Female
  Weight: 79.5 kg

DRUGS (4)
  1. ENBREL [Suspect]
     Indication: RHEUMATOID ARTHRITIS
     Route: 058
     Dates: start: 19980101, end: 20061201
  2. WELLBUTRIN [Concomitant]
  3. VITAMIN CAP [Concomitant]
  4. PREDNISONE [Concomitant]

REACTIONS (2)
  - HERPES ZOSTER [None]
  - PNEUMONIA [None]
